FAERS Safety Report 23203543 (Version 4)
Quarter: 2024Q1

REPORT INFORMATION
  Report Type: Report from Study
  Country: US (occurrence: US)
  Receive Date: 20231120
  Receipt Date: 20240206
  Transmission Date: 20240410
  Serious: Yes (Hospitalization, Other)
  Sender: FDA-Public Use
  Company Number: US-JAZZ PHARMACEUTICALS-2023-US-023236

PATIENT
  Age: 9 Year
  Sex: Male
  Weight: 35.828 kg

DRUGS (2)
  1. EPIDIOLEX [Suspect]
     Active Substance: CANNABIDIOL
     Indication: Lennox-Gastaut syndrome
     Dosage: 0.5 MILLILITER, BID
     Route: 048
  2. EPIDIOLEX [Suspect]
     Active Substance: CANNABIDIOL
     Dosage: 2.4 MILLILITER, BID
     Route: 048
     Dates: start: 20231103

REACTIONS (3)
  - Seizure [Unknown]
  - Seizure [Unknown]
  - Device connection issue [Unknown]

NARRATIVE: CASE EVENT DATE: 20231102
